FAERS Safety Report 12799489 (Version 3)
Quarter: 2016Q4

REPORT INFORMATION
  Report Type: Spontaneous
  Country: GB (occurrence: GB)
  Receive Date: 20160930
  Receipt Date: 20161202
  Transmission Date: 20170207
  Serious: Yes (Hospitalization, Other)
  Sender: FDA-Public Use
  Company Number: GB-SA-2016SA175648

PATIENT
  Sex: Male
  Weight: 3.48 kg

DRUGS (5)
  1. CITALOPRAM [Suspect]
     Active Substance: CITALOPRAM HYDROBROMIDE
     Dosage: CITALOPRAM (20MG OM)
     Route: 064
  2. CODEINE PHOSPHATE [Suspect]
     Active Substance: CODEINE PHOSPHATE
     Route: 064
  3. TRAMADOL. [Suspect]
     Active Substance: TRAMADOL
     Route: 065
  4. ZOLPIDEM [Suspect]
     Active Substance: ZOLPIDEM\ZOLPIDEM TARTRATE
     Route: 064
  5. CHLORPROMAZINE. [Suspect]
     Active Substance: CHLORPROMAZINE
     Route: 064

REACTIONS (16)
  - Feeding disorder [Recovered/Resolved]
  - Foetal exposure during pregnancy [Recovered/Resolved]
  - Drug withdrawal syndrome neonatal [Recovered/Resolved]
  - Poor feeding infant [Unknown]
  - Lower respiratory tract infection [Recovered/Resolved]
  - Irritability [Unknown]
  - Gastrooesophageal reflux disease [Recovered/Resolved]
  - Selective eating disorder [Recovered/Resolved]
  - Malaise [Recovered/Resolved]
  - Weight decreased [Recovered/Resolved]
  - Poor feeding infant [Recovered/Resolved]
  - Respiratory distress [Recovered/Resolved]
  - Hypoglycaemia [Recovered/Resolved]
  - Gastrointestinal disorder [Unknown]
  - Vomiting [Recovered/Resolved]
  - Toxicity to various agents [Recovered/Resolved]
